FAERS Safety Report 25019434 (Version 1)
Quarter: 2025Q1

REPORT INFORMATION
  Report Type: Spontaneous
  Country: FR (occurrence: FR)
  Receive Date: 20250227
  Receipt Date: 20250227
  Transmission Date: 20250409
  Serious: Yes (Other)
  Sender: TEVA
  Company Number: None

PATIENT
  Age: 68 Year
  Sex: Male
  Weight: 71 kg

DRUGS (3)
  1. CARBOPLATIN [Suspect]
     Active Substance: CARBOPLATIN
     Indication: Adrenal gland cancer metastatic
     Route: 042
     Dates: start: 20241106, end: 20241220
  2. KEYTRUDA [Suspect]
     Active Substance: PEMBROLIZUMAB
     Indication: Adrenal gland cancer metastatic
     Route: 042
     Dates: start: 20241106, end: 20241220
  3. ALIMTA [Suspect]
     Active Substance: PEMETREXED DISODIUM
     Indication: Adrenal gland cancer metastatic
     Route: 042
     Dates: start: 20241106, end: 20241220

REACTIONS (1)
  - Pancreatitis acute [Recovered/Resolved]

NARRATIVE: CASE EVENT DATE: 20250113
